FAERS Safety Report 8200651-2 (Version None)
Quarter: 2012Q1

REPORT INFORMATION
  Report Type: 
  Country: None (occurrence: None)
  Receive Date: 20120222
  Receipt Date: 20120208
  Transmission Date: 20120608
  Serious: No
  Sender: FDA-Public Use
  Company Number: US-145282

PATIENT

DRUGS (1)
  1. WINRHO SDF [Suspect]
     Indication: AUTOIMMUNE THROMBOCYTOPENIA
     Dosage: (INTRAVENOUS (NOT OTHERWISE SPECIFIED))
     Route: 042

REACTIONS (1)
  - DRUG INEFFECTIVE [None]
